FAERS Safety Report 11215119 (Version 1)
Quarter: 2015Q2

REPORT INFORMATION
  Report Type: Spontaneous
  Country: CA (occurrence: CA)
  Receive Date: 20150624
  Receipt Date: 20150624
  Transmission Date: 20150821
  Serious: Yes (Other)
  Sender: FDA-Public Use
  Company Number: CA-ROCHE-1598031

PATIENT
  Age: 42 Year
  Sex: Female

DRUGS (8)
  1. SYMBICORT [Concomitant]
     Active Substance: BUDESONIDE\FORMOTEROL FUMARATE DIHYDRATE
  2. NASONEX [Concomitant]
     Active Substance: MOMETASONE FUROATE
  3. OMALIZUMAB [Suspect]
     Active Substance: OMALIZUMAB
     Indication: ASTHMA
     Route: 058
     Dates: start: 20110408
  4. FLONASE [Concomitant]
     Active Substance: FLUTICASONE PROPIONATE
  5. VENTOLIN [Concomitant]
     Active Substance: ALBUTEROL SULFATE
  6. ALVESCO [Concomitant]
     Active Substance: CICLESONIDE
  7. SINGULAIR [Concomitant]
     Active Substance: MONTELUKAST SODIUM
  8. ADVAIR HFA [Concomitant]
     Active Substance: FLUTICASONE PROPIONATE\SALMETEROL XINAFOATE

REACTIONS (3)
  - Asthma [Unknown]
  - Blood immunoglobulin E increased [Unknown]
  - Middle insomnia [Unknown]

NARRATIVE: CASE EVENT DATE: 20150226
